FAERS Safety Report 7386098-X (Version None)
Quarter: 2011Q1

REPORT INFORMATION
  Report Type: 
  Country: None (occurrence: None)
  Receive Date: 20110331
  Receipt Date: 20110324
  Transmission Date: 20110831
  Serious: Yes (Death)
  Sender: FDA-Public Use
  Company Number: JP-JNJFOC-20101202535

PATIENT
  Sex: Female
  Weight: 69 kg

DRUGS (10)
  1. DOXORUBICIN HCL [Suspect]
     Dosage: CYCLE 3
     Route: 042
  2. MUCOSTA [Concomitant]
     Route: 048
  3. SIMVASTATIN [Concomitant]
     Indication: HYPERLIPIDAEMIA
     Route: 048
  4. DOXORUBICIN HCL [Suspect]
     Dosage: CYCLE 1
     Route: 042
  5. DOXORUBICIN HCL [Suspect]
     Dosage: CYCLE 4
     Route: 042
  6. WARFARIN [Concomitant]
     Indication: DEEP VEIN THROMBOSIS
     Route: 048
  7. LOXONIN [Concomitant]
     Indication: OVARIAN CANCER RECURRENT
     Route: 048
  8. DOXORUBICIN HCL [Suspect]
     Indication: OVARIAN CANCER RECURRENT
     Dosage: CYCLE 5
     Route: 042
  9. DOXORUBICIN HCL [Suspect]
     Dosage: CYCLE 2
     Route: 042
  10. MUCOSTA [Concomitant]
     Indication: PROPHYLAXIS
     Route: 048

REACTIONS (1)
  - DEATH [None]
